FAERS Safety Report 19109206 (Version 1)
Quarter: 2021Q2

REPORT INFORMATION
  Report Type: Spontaneous
  Country: PH (occurrence: PH)
  Receive Date: 20210409
  Receipt Date: 20210409
  Transmission Date: 20210717
  Serious: Yes (Death, Hospitalization, Other)
  Sender: FDA-Public Use
  Company Number: PH-ROCHE-2802962

PATIENT
  Age: 69 Year
  Sex: Male

DRUGS (1)
  1. ACTILYSE [Suspect]
     Active Substance: ALTEPLASE
     Indication: PRODUCT USED FOR UNKNOWN INDICATION
     Dosage: RTPA BOLUS
     Route: 065
     Dates: start: 20210221

REACTIONS (2)
  - Death [Fatal]
  - Cerebral infarction [Unknown]

NARRATIVE: CASE EVENT DATE: 20210222
